FAERS Safety Report 18759546 (Version 2)
Quarter: 2021Q1

REPORT INFORMATION
  Report Type: Spontaneous
  Country: JP (occurrence: JP)
  Receive Date: 20210120
  Receipt Date: 20210120
  Transmission Date: 20210419
  Serious: Yes (Death, Other)
  Sender: FDA-Public Use
  Company Number: JP-SAKK-2021SA013941AA

PATIENT
  Age: 70 Year
  Sex: Female
  Weight: 40 kg

DRUGS (1)
  1. FABRAZYME [Suspect]
     Active Substance: AGALSIDASE BETA
     Indication: PRODUCT USED FOR UNKNOWN INDICATION
     Dosage: DAILY DOSE: 40 MG
     Route: 041
     Dates: start: 200506, end: 20201124

REACTIONS (2)
  - Disease progression [Fatal]
  - Cardiac failure [Fatal]
